FAERS Safety Report 4735512-4 (Version None)
Quarter: 2005Q3

REPORT INFORMATION
  Report Type: 
  Country: None (occurrence: None)
  Receive Date: 20050801
  Receipt Date: 20050801
  Transmission Date: 20060218
  Serious: Yes (Hospitalization)
  Sender: FDA-Public Use
  Company Number: None

PATIENT
  Age: 74 Year
  Sex: Male

DRUGS (1)
  1. NPH INSULIN [Suspect]
     Indication: DIABETES MELLITUS
     Dosage: 30 UNITS  QAM + 10 UNITS QPM
     Dates: start: 20050429, end: 20050509

REACTIONS (2)
  - ATRIAL FIBRILLATION [None]
  - HYPOGLYCAEMIA [None]
